FAERS Safety Report 8173198-X (Version None)
Quarter: 2012Q1

REPORT INFORMATION
  Report Type: 
  Country: None (occurrence: None)
  Receive Date: 20120229
  Receipt Date: 20110729
  Transmission Date: 20120608
  Serious: Yes (Hospitalization)
  Sender: FDA-Public Use
  Company Number: US-GLAXOSMITHKLINE-A0939108A

PATIENT
  Age: 47 Year
  Sex: Male

DRUGS (2)
  1. NO CONCURRENT MEDICATION [Concomitant]
  2. IMITREX [Suspect]
     Indication: MIGRAINE
     Dosage: 6MG PER DAY
     Route: 058
     Dates: start: 20110728, end: 20110728

REACTIONS (5)
  - VERTIGO [None]
  - NAUSEA [None]
  - CHEST DISCOMFORT [None]
  - DIZZINESS [None]
  - CHEST PAIN [None]
